FAERS Safety Report 8534999-9 (Version None)
Quarter: 2012Q3

REPORT INFORMATION
  Report Type: 
  Country: None (occurrence: None)
  Receive Date: 20120724
  Receipt Date: 20120718
  Transmission Date: 20120928
  Serious: Yes (Other)
  Sender: FDA-Public Use
  Company Number: JP-PFIZER INC-2012160855

PATIENT
  Age: 77 Year
  Sex: Female

DRUGS (1)
  1. LYRICA [Suspect]
     Dosage: 150MG, DAILY
     Route: 048
     Dates: start: 20120701, end: 20120704

REACTIONS (1)
  - CONVULSION [None]
